FAERS Safety Report 9440882 (Version 1)
Quarter: 2013Q3

REPORT INFORMATION
  Report Type: Report from Study
  Country: CA (occurrence: CA)
  Receive Date: 20130805
  Receipt Date: 20130805
  Transmission Date: 20140515
  Serious: Yes (Other)
  Sender: FDA-Public Use
  Company Number: CA-ABBOTT-13P-028-1122829-00

PATIENT
  Sex: Female
  Weight: 114.41 kg

DRUGS (12)
  1. HUMIRA [Suspect]
     Indication: CROHN^S DISEASE
     Route: 058
     Dates: start: 20130402
  2. HUMIRA [Suspect]
     Dates: start: 20130610
  3. RAMIPRIL [Concomitant]
     Indication: CARDIAC DISORDER
     Route: 048
  4. RAMIPRIL [Concomitant]
     Indication: PROPHYLAXIS
  5. CARBAMAZEPINE [Concomitant]
     Indication: BIPOLAR DISORDER
     Route: 048
  6. AZATHIOPRINE [Concomitant]
     Indication: CROHN^S DISEASE
     Route: 048
  7. PANTOPRAZOLE [Concomitant]
     Indication: GASTROOESOPHAGEAL REFLUX DISEASE
     Route: 048
  8. HYDROCHLOROTHIAZIDE [Concomitant]
     Indication: DIABETES MELLITUS
     Route: 048
  9. HYDROCHLOROTHIAZIDE [Concomitant]
     Indication: PROPHYLAXIS
  10. CLONAZEPAM [Concomitant]
     Indication: ANXIETY
     Route: 048
  11. ZOPICLONE [Concomitant]
     Indication: SLEEP DISORDER THERAPY
     Route: 048
  12. VICTOZA [Concomitant]
     Indication: DIABETES MELLITUS
     Route: 030

REACTIONS (1)
  - Osteoarthritis [Recovered/Resolved]
